FAERS Safety Report 6327453-6 (Version None)
Quarter: 2009Q3

REPORT INFORMATION
  Report Type: 
  Country: None (occurrence: None)
  Receive Date: 20090821
  Receipt Date: 20090811
  Transmission Date: 20100115
  Serious: Yes (Death)
  Sender: FDA-Public Use
  Company Number: GXKR2008FR04124

PATIENT
  Age: 74 Year
  Sex: Female
  Weight: 79 kg

DRUGS (5)
  1. SUCCINYLCHOLINE CHLORIDE [Suspect]
     Indication: ANAESTHESIA
     Dosage: 1 MG/KG, INJECTION NOS
  2. PROPOFOL [Concomitant]
  3. SPIRONOLACTONE [Concomitant]
  4. FUROSEMIDE [Concomitant]
  5. FENOFIBRATE [Concomitant]

REACTIONS (8)
  - ANAPHYLACTIC SHOCK [None]
  - BRADYCARDIA [None]
  - BRONCHOSPASM [None]
  - CARDIAC ARREST [None]
  - EXTRASYSTOLES [None]
  - PULMONARY OEDEMA [None]
  - PULSE ABSENT [None]
  - VENTRICULAR FIBRILLATION [None]
